FAERS Safety Report 12976034 (Version 3)
Quarter: 2017Q1

REPORT INFORMATION
  Report Type: Spontaneous
  Country: US (occurrence: US)
  Receive Date: 20161126
  Receipt Date: 20170308
  Transmission Date: 20170428
  Serious: No
  Sender: FDA-Public Use
  Company Number: US-ASTRAZENECA-2016SF21993

PATIENT
  Age: 64 Year
  Sex: Female
  Weight: 62.6 kg

DRUGS (4)
  1. PULMICORT FLEXHALER [Suspect]
     Active Substance: BUDESONIDE
     Indication: PULMONARY CONGESTION
     Dosage: 180 MCG, TWO PUFFS TWICE DAILY
     Route: 055
     Dates: start: 2012
  2. PULMICORT FLEXHALER [Suspect]
     Active Substance: BUDESONIDE
     Indication: COUGH
     Dosage: 180 MCG, TWO PUFFS TWICE DAILY
     Route: 055
     Dates: start: 2012
  3. PULMICORT FLEXHALER [Suspect]
     Active Substance: BUDESONIDE
     Indication: BRONCHIECTASIS
     Dosage: 180 MCG, TWO PUFFS TWICE DAILY
     Route: 055
     Dates: start: 2012
  4. VENTOLIN [Concomitant]
     Active Substance: ALBUTEROL SULFATE
     Indication: INHALATION THERAPY
     Dosage: 90.0UG AS REQUIRED
     Route: 055

REACTIONS (6)
  - Pulmonary congestion [Not Recovered/Not Resolved]
  - Product quality issue [Unknown]
  - Off label use [Not Recovered/Not Resolved]
  - Product use issue [Not Recovered/Not Resolved]
  - Body height decreased [Unknown]
  - Cough [Not Recovered/Not Resolved]

NARRATIVE: CASE EVENT DATE: 2012
